FAERS Safety Report 6699628-8 (Version None)
Quarter: 2010Q2

REPORT INFORMATION
  Report Type: 
  Country: None (occurrence: None)
  Receive Date: 20100428
  Receipt Date: 20100421
  Transmission Date: 20101027
  Serious: No
  Sender: FDA-Public Use
  Company Number: US-BIOGENIDEC-2010BI011493

PATIENT
  Sex: Female

DRUGS (2)
  1. TYSABRI [Suspect]
     Indication: MULTIPLE SCLEROSIS
     Route: 042
     Dates: start: 20070622
  2. AVONEX [Concomitant]
     Indication: MULTIPLE SCLEROSIS
     Route: 030

REACTIONS (13)
  - ABASIA [None]
  - BALANCE DISORDER [None]
  - COGNITIVE DISORDER [None]
  - DEVICE CONNECTION ISSUE [None]
  - DYSSTASIA [None]
  - EMOTIONAL DISTRESS [None]
  - IRRITABILITY [None]
  - MUSCLE RIGIDITY [None]
  - MUSCLE SPASTICITY [None]
  - MUSCULOSKELETAL STIFFNESS [None]
  - SPEECH DISORDER [None]
  - SYNCOPE [None]
  - URINARY INCONTINENCE [None]
